FAERS Safety Report 9371915 (Version 1)
Quarter: 2013Q2

REPORT INFORMATION
  Report Type: Report from Study
  Country: US (occurrence: US)
  Receive Date: 20130627
  Receipt Date: 20130627
  Transmission Date: 20140414
  Serious: Yes (Other)
  Sender: FDA-Public Use
  Company Number: US-MYLANLABS-2012S1010198

PATIENT
  Age: 70 Year
  Sex: Female

DRUGS (5)
  1. CLOZAPINE TABLETS [Suspect]
     Indication: SCHIZOAFFECTIVE DISORDER
     Route: 048
     Dates: end: 20120514
  2. CLOZAPINE TABLETS [Suspect]
     Indication: SCHIZOAFFECTIVE DISORDER
     Route: 048
     Dates: start: 20120522
  3. TEGRETOL [Suspect]
     Dates: end: 2012
  4. TEGRETOL [Suspect]
     Dates: start: 2012
  5. ZYPREXA [Concomitant]

REACTIONS (2)
  - Granulocytopenia [Recovered/Resolved]
  - Leukopenia [Recovered/Resolved]
